FAERS Safety Report 14197085 (Version 6)
Quarter: 2019Q2

REPORT INFORMATION
  Report Type: Report from Study
  Country: US (occurrence: US)
  Receive Date: 20171116
  Receipt Date: 20190611
  Transmission Date: 20190711
  Serious: Yes (Hospitalization, Other)
  Sender: FDA-Public Use
  Company Number: US-ACTELION-A-US2017-162363

PATIENT
  Age: 55 Year
  Sex: Female

DRUGS (14)
  1. ULTRAM [Concomitant]
     Active Substance: TRAMADOL HYDROCHLORIDE
  2. CYCLOBENZAPRINE. [Concomitant]
     Active Substance: CYCLOBENZAPRINE
  3. SILDENAFIL. [Concomitant]
     Active Substance: SILDENAFIL
  4. REMODULIN [Concomitant]
     Active Substance: TREPROSTINIL
  5. BUPROPION. [Concomitant]
     Active Substance: BUPROPION
  6. ORENITRAM [Concomitant]
     Active Substance: TREPROSTINIL
  7. SPIRONOLACTONE. [Concomitant]
     Active Substance: SPIRONOLACTONE
  8. ADCIRCA [Concomitant]
     Active Substance: TADALAFIL
  9. NORCO [Concomitant]
     Active Substance: ACETAMINOPHEN\HYDROCODONE BITARTRATE
  10. PREVACID [Concomitant]
     Active Substance: LANSOPRAZOLE
  11. FERROUS SULFATE. [Concomitant]
     Active Substance: FERROUS SULFATE
  12. OPSUMIT [Suspect]
     Active Substance: MACITENTAN
     Indication: PULMONARY ARTERIAL HYPERTENSION
     Dosage: 10 MG, QD
     Route: 048
     Dates: start: 20170616
  13. FUROSEMIDE. [Concomitant]
     Active Substance: FUROSEMIDE
  14. COLACE [Concomitant]
     Active Substance: DOCUSATE SODIUM

REACTIONS (15)
  - Neutropenia [Unknown]
  - Internal haemorrhage [Not Recovered/Not Resolved]
  - Splenomegaly [Recovered/Resolved]
  - Pyrexia [Unknown]
  - Diarrhoea [Unknown]
  - Intestinal varices [Recovered/Resolved]
  - Gastric varices [Recovered/Resolved]
  - Gastrointestinal perforation [Not Recovered/Not Resolved]
  - Transplant evaluation [Not Recovered/Not Resolved]
  - Flank pain [Recovered/Resolved]
  - Portopulmonary hypertension [Unknown]
  - Hepatic encephalopathy [Unknown]
  - Liver disorder [Unknown]
  - Mesenteric vein thrombosis [Unknown]
  - Pain [Not Recovered/Not Resolved]

NARRATIVE: CASE EVENT DATE: 20180801
